FAERS Safety Report 12130836 (Version 1)
Quarter: 2016Q1

REPORT INFORMATION
  Report Type: Spontaneous
  Country: US (occurrence: US)
  Receive Date: 20160301
  Receipt Date: 20160301
  Transmission Date: 20160526
  Serious: No
  Sender: FDA-Public Use
  Company Number: US-JNJFOC-20160209006

PATIENT
  Sex: Female
  Weight: 73.94 kg

DRUGS (4)
  1. OPSUMIT [Concomitant]
     Active Substance: MACITENTAN
     Route: 065
  2. XARELTO [Suspect]
     Active Substance: RIVAROXABAN
     Indication: PRODUCT USED FOR UNKNOWN INDICATION
     Route: 048
  3. ADCIRCA [Concomitant]
     Active Substance: TADALAFIL
     Route: 065
  4. ADEMPAS [Concomitant]
     Active Substance: RIOCIGUAT
     Route: 065

REACTIONS (4)
  - Decreased appetite [Unknown]
  - Chest pain [Unknown]
  - Syncope [Unknown]
  - Nausea [Unknown]
